FAERS Safety Report 10855078 (Version 2)
Quarter: 2015Q1

REPORT INFORMATION
  Report Type: Spontaneous
  Country: US (occurrence: US)
  Receive Date: 20150223
  Receipt Date: 20150312
  Transmission Date: 20150721
  Serious: No
  Sender: FDA-Public Use
  Company Number: US-009507513-1502USA009341

PATIENT
  Age: 70 Year
  Sex: Female
  Weight: 58.96 kg

DRUGS (6)
  1. CLARITIN [Suspect]
     Active Substance: LORATADINE
     Indication: RHINORRHOEA
     Dosage: 10 MG, QD
     Route: 048
     Dates: start: 20150207, end: 20150210
  2. ZOLPIDEM [Concomitant]
     Active Substance: ZOLPIDEM\ZOLPIDEM TARTRATE
     Indication: PRODUCT USED FOR UNKNOWN INDICATION
     Dosage: 5 MG, PRN
  3. CLARITIN [Suspect]
     Active Substance: LORATADINE
     Indication: EYE PRURITUS
  4. BENADRYL [Concomitant]
     Active Substance: DIPHENHYDRAMINE HYDROCHLORIDE
     Indication: PRODUCT USED FOR UNKNOWN INDICATION
     Dosage: UNK, PRN
  5. OMEGA (HAWTHORN (+) LILY OF THE VALLEY (+) PROXYPHYLLINE) [Concomitant]
     Indication: PRODUCT USED FOR UNKNOWN INDICATION
     Dosage: UNK, UNKNOWN
  6. VITAMIN D [Concomitant]
     Active Substance: CHOLECALCIFEROL
     Indication: PRODUCT USED FOR UNKNOWN INDICATION
     Dosage: UNK, UNKNOWN

REACTIONS (3)
  - Tongue discolouration [Recovered/Resolved]
  - Swollen tongue [Recovered/Resolved]
  - Lip swelling [Recovered/Resolved]

NARRATIVE: CASE EVENT DATE: 20150210
